FAERS Safety Report 14741794 (Version 1)
Quarter: 2018Q2

REPORT INFORMATION
  Report Type: Spontaneous
  Country: US (occurrence: US)
  Receive Date: 20180404
  Receipt Date: 20180404
  Transmission Date: 20180711
  Serious: No
  Sender: FDA-Public Use
  Company Number: None

PATIENT
  Age: 69 Year
  Sex: Female
  Weight: 65.77 kg

DRUGS (10)
  1. SIMVASTATIN. [Concomitant]
     Active Substance: SIMVASTATIN
  2. DAILY VITAMIN 50+ [Concomitant]
  3. OXYCODONE/ACETAMINOPHEN [Concomitant]
     Active Substance: ACETAMINOPHEN\OXYCODONE HYDROCHLORIDE
  4. CELECOXIB. [Concomitant]
     Active Substance: CELECOXIB
  5. VITAMIN D [Concomitant]
     Active Substance: CHOLECALCIFEROL
  6. OMEPRAZOLE. [Concomitant]
     Active Substance: OMEPRAZOLE
  7. ZOLPIDEM GENERIC FOR AMBIEN 10MG [Suspect]
     Active Substance: ZOLPIDEM TARTRATE
     Indication: SLEEP DISORDER
     Dosage: 1 TABLET AT BEEDTIME AS NEEDED, BY MOUTH?          ?
     Route: 048
     Dates: start: 20161122, end: 20180302
  8. LEVOTHYROXIN [Concomitant]
     Active Substance: LEVOTHYROXINE
  9. MG [Concomitant]
     Active Substance: MAGNESIUM
  10. CA [Concomitant]

REACTIONS (3)
  - Abnormal behaviour [None]
  - Incoherent [None]
  - Memory impairment [None]

NARRATIVE: CASE EVENT DATE: 20180302
